FAERS Safety Report 15795493 (Version 1)
Quarter: 2019Q1

REPORT INFORMATION
  Report Type: Spontaneous
  Country: US (occurrence: US)
  Receive Date: 20190107
  Receipt Date: 20190107
  Transmission Date: 20190417
  Serious: No
  Sender: FDA-Public Use
  Company Number: US-TARO-2018TAR00086

PATIENT
  Sex: Female

DRUGS (1)
  1. TRIAMCINOLONE ACETONIDE CREAM USP 0.1% [Suspect]
     Active Substance: TRIAMCINOLONE ACETONIDE
     Indication: ECZEMA
     Dosage: UNK UNK, 2X/DAY
     Route: 061

REACTIONS (2)
  - Drug ineffective [Recovered/Resolved]
  - Pruritus [Recovered/Resolved]
